FAERS Safety Report 7576782-7 (Version None)
Quarter: 2011Q2

REPORT INFORMATION
  Report Type: 
  Country: None (occurrence: None)
  Receive Date: 20110628
  Receipt Date: 20110614
  Transmission Date: 20111010
  Serious: Yes (Death, Hospitalization)
  Sender: FDA-Public Use
  Company Number: FR-JNJFOC-20110606957

PATIENT
  Age: 84 Year
  Sex: Female

DRUGS (9)
  1. LEXOMIL [Concomitant]
  2. EFFEXOR [Concomitant]
  3. FOLIC ACID [Concomitant]
  4. POTASSIUM CHLORIDE [Concomitant]
  5. METHOTREXATE [Suspect]
     Indication: TEMPORAL ARTERITIS
     Route: 058
     Dates: start: 20060601, end: 20100929
  6. REMICADE [Suspect]
     Indication: TEMPORAL ARTERITIS
     Dosage: 2 CURES OF 3 INFUSIONS
     Route: 042
     Dates: start: 20071201, end: 20081224
  7. PREDNISONE [Concomitant]
  8. NEXIUM [Concomitant]
  9. ACARBOSE [Concomitant]

REACTIONS (3)
  - HAEMOGLOBIN DECREASED [None]
  - COLON CANCER METASTATIC [None]
  - THROMBOCYTOPENIA [None]
